FAERS Safety Report 6978224-9 (Version None)
Quarter: 2010Q3

REPORT INFORMATION
  Report Type: 
  Country: None (occurrence: None)
  Receive Date: 20100913
  Receipt Date: 20100830
  Transmission Date: 20110219
  Serious: Yes (Hospitalization, Other)
  Sender: FDA-Public Use
  Company Number: US-ELI_LILLY_AND_COMPANY-US201009001033

PATIENT
  Sex: Female

DRUGS (6)
  1. FORTEO [Suspect]
     Dates: start: 20100601
  2. ANALGESICS [Concomitant]
     Indication: PAIN
  3. CALCIUM [Concomitant]
  4. VITAMIN D [Concomitant]
  5. STOOL SOFTENER [Concomitant]
  6. ANTIBIOTICS [Concomitant]

REACTIONS (4)
  - FALL [None]
  - LIMB INJURY [None]
  - SKELETAL INJURY [None]
  - WEIGHT BEARING DIFFICULTY [None]
